FAERS Safety Report 19477549 (Version 1)
Quarter: 2021Q2

REPORT INFORMATION
  Report Type: Spontaneous
  Country: SA (occurrence: SA)
  Receive Date: 20210630
  Receipt Date: 20210630
  Transmission Date: 20210717
  Serious: Yes (Death, Other)
  Sender: FDA-Public Use
  Company Number: SA-SEATTLE GENETICS-2020SGN02593

PATIENT

DRUGS (1)
  1. ADCETRIS [Suspect]
     Active Substance: BRENTUXIMAB VEDOTIN
     Indication: SALVAGE THERAPY
     Dosage: UNK
     Route: 065

REACTIONS (7)
  - Neuropathy peripheral [Recovered/Resolved]
  - Neutropenia [Unknown]
  - Off label use [Unknown]
  - Respiratory failure [Fatal]
  - Acute lung injury [Unknown]
  - Pulmonary haemorrhage [Fatal]
  - Disease progression [Unknown]
